FAERS Safety Report 17549854 (Version 1)
Quarter: 2020Q1

REPORT INFORMATION
  Report Type: Spontaneous
  Country: US (occurrence: US)
  Receive Date: 20200317
  Receipt Date: 20200317
  Transmission Date: 20200409
  Serious: No
  Sender: FDA-Public Use
  Company Number: US-009507513-2003USA004389

PATIENT
  Age: 28 Year
  Sex: Female

DRUGS (1)
  1. NEXPLANON [Suspect]
     Active Substance: ETONOGESTREL
     Indication: CONTRACEPTION
     Dosage: 1 ROD, EVERY 3 YEAR
     Route: 059
     Dates: start: 20200227, end: 20200303

REACTIONS (2)
  - Implant site pruritus [Unknown]
  - Implant site erythema [Unknown]

NARRATIVE: CASE EVENT DATE: 20200302
